FAERS Safety Report 8430908-1 (Version None)
Quarter: 2012Q2

REPORT INFORMATION
  Report Type: 
  Country: None (occurrence: None)
  Receive Date: 20120612
  Receipt Date: 20120604
  Transmission Date: 20120825
  Serious: Yes (Hospitalization, Other)
  Sender: FDA-Public Use
  Company Number: FR-PFIZER INC-K201100021

PATIENT
  Age: 72 Year
  Sex: Female

DRUGS (5)
  1. CLONAZEPAM [Suspect]
     Indication: INTENTIONAL OVERDOSE
     Dosage: UNK, ONCE
     Route: 048
     Dates: start: 20101208, end: 20101208
  2. COTRIATEC [Suspect]
     Indication: INTENTIONAL OVERDOSE
     Dosage: UNK, ONCE
     Route: 048
     Dates: start: 20101208, end: 20101208
  3. NEBIVOLOL [Suspect]
     Indication: INTENTIONAL OVERDOSE
     Dosage: UNK, ONCE
     Route: 048
     Dates: start: 20101208, end: 20101208
  4. OMEPRAZOLE [Suspect]
     Indication: INTENTIONAL OVERDOSE
     Dosage: UNK, ONCE
     Route: 048
     Dates: start: 20101208, end: 20101208
  5. ACETAMINOPHEN AND TRAMADOL HCL [Suspect]
     Indication: INTENTIONAL OVERDOSE
     Dosage: UNK, ONCE
     Route: 048
     Dates: start: 20101208, end: 20101208

REACTIONS (7)
  - RHABDOMYOLYSIS [None]
  - BRADYCARDIA [None]
  - MULTIPLE DRUG OVERDOSE INTENTIONAL [None]
  - HEPATITIS [None]
  - RENAL FAILURE ACUTE [None]
  - DRUG-INDUCED LIVER INJURY [None]
  - SOMNOLENCE [None]
